FAERS Safety Report 8053497-2 (Version None)
Quarter: 2012Q1

REPORT INFORMATION
  Report Type: 
  Country: None (occurrence: None)
  Receive Date: 20120118
  Receipt Date: 20120111
  Transmission Date: 20120608
  Serious: Yes (Hospitalization, Other)
  Sender: FDA-Public Use
  Company Number: IL-ELI_LILLY_AND_COMPANY-IL201111000810

PATIENT
  Sex: Female

DRUGS (10)
  1. TOLTERODINE TARTRATE [Concomitant]
  2. CILAZAPRIL [Concomitant]
  3. LANTON [Concomitant]
  4. CITALOPRAM HYDROBROMIDE [Concomitant]
  5. GLUCOPHAGE [Concomitant]
  6. OVESTIN [Concomitant]
  7. BYETTA [Suspect]
     Indication: DIABETES MELLITUS
     Dosage: 5 UG, UNKNOWN
  8. BYETTA [Suspect]
     Dosage: 10 UG, BID
     Dates: start: 20110615, end: 20110812
  9. MOTILIUM [Concomitant]
  10. AMARYL [Concomitant]

REACTIONS (1)
  - PANCREATIC CARCINOMA [None]
